FAERS Safety Report 17698530 (Version 1)
Quarter: 2020Q2

REPORT INFORMATION
  Report Type: Spontaneous
  Country: US (occurrence: US)
  Receive Date: 20200422
  Receipt Date: 20200422
  Transmission Date: 20200714
  Serious: Yes (Hospitalization)
  Sender: FDA-Public Use
  Company Number: None

PATIENT
  Age: 54 Year
  Sex: Female

DRUGS (25)
  1. CARISOPRODOL. [Concomitant]
     Active Substance: CARISOPRODOL
  2. FLOVENT DISK AER [Concomitant]
  3. METOLAZONE. [Concomitant]
     Active Substance: METOLAZONE
  4. ADVAIR DISKU AER [Concomitant]
  5. AZELASTINE. [Concomitant]
     Active Substance: AZELASTINE HYDROCHLORIDE
  6. TORSEMIDE. [Concomitant]
     Active Substance: TORSEMIDE
  7. METFORMIN [Concomitant]
     Active Substance: METFORMIN HYDROCHLORIDE
  8. SPIRONOLACT [Concomitant]
     Active Substance: SPIRONOLACTONE
  9. BUDESONIDE. [Concomitant]
     Active Substance: BUDESONIDE
  10. CEPHALEXIN. [Concomitant]
     Active Substance: CEPHALEXIN
  11. FLUCONAZOLE. [Concomitant]
     Active Substance: FLUCONAZOLE
  12. BUMETANIDE. [Concomitant]
     Active Substance: BUMETANIDE
  13. TRAMADOL HCL [Concomitant]
     Active Substance: TRAMADOL HYDROCHLORIDE
  14. TADALAFIL 20MG TAB [Suspect]
     Active Substance: TADALAFIL
     Indication: PULMONARY HYPERTENSION
     Route: 048
     Dates: start: 20200123
  15. ALBUTEROL NEB [Concomitant]
     Active Substance: ALBUTEROL
  16. HYDROCO/APAP [Concomitant]
     Active Substance: ACETAMINOPHEN\HYDROCODONE
  17. LEVOFLOXACIN. [Concomitant]
     Active Substance: LEVOFLOXACIN
  18. LEVOTHYROXIN [Concomitant]
     Active Substance: LEVOTHYROXINE
  19. LOSARTAN POT [Concomitant]
     Active Substance: LOSARTAN POTASSIUM
  20. MUPIROCIN. [Concomitant]
     Active Substance: MUPIROCIN
  21. ROPINIROLE. [Concomitant]
     Active Substance: ROPINIROLE
  22. GABAPENTIN. [Concomitant]
     Active Substance: GABAPENTIN
  23. AMOX/K CLAV [Concomitant]
     Active Substance: AMOXICILLIN\CLAVULANATE POTASSIUM
  24. DOXYCL HYC [Concomitant]
  25. SIMVASTATIN. [Concomitant]
     Active Substance: SIMVASTATIN

REACTIONS (2)
  - Swelling [None]
  - Cardiac disorder [None]

NARRATIVE: CASE EVENT DATE: 202003
